FAERS Safety Report 4805464-7 (Version None)
Quarter: 2005Q4

REPORT INFORMATION
  Report Type: 
  Country: None (occurrence: None)
  Receive Date: 20051021
  Receipt Date: 20050512
  Transmission Date: 20060501
  Serious: Yes (Death)
  Sender: FDA-Public Use
  Company Number: GB-ABBOTT-05P-167-0300477-00

PATIENT
  Age: 84 Year
  Sex: Female

DRUGS (7)
  1. EPILIM LIQUID [Suspect]
     Indication: DEMENTIA ALZHEIMER'S TYPE
     Route: 048
     Dates: start: 20040714, end: 20040921
  2. EPILIM LIQUID [Suspect]
     Route: 048
     Dates: start: 20040921
  3. DIGOXIN [Concomitant]
     Indication: DRUG USE FOR UNKNOWN INDICATION
     Route: 065
  4. HEART TABLETS [Concomitant]
     Indication: DRUG USE FOR UNKNOWN INDICATION
     Route: 065
  5. ASPIRIN [Concomitant]
     Indication: DRUG USE FOR UNKNOWN INDICATION
     Route: 065
  6. FLUOXETINE [Concomitant]
     Indication: DRUG USE FOR UNKNOWN INDICATION
     Route: 065
  7. ANTIBIOTICS [Concomitant]
     Indication: INFECTION

REACTIONS (12)
  - ABDOMINAL DISTENSION [None]
  - ACCIDENTAL OVERDOSE [None]
  - APHASIA [None]
  - BACK DISORDER [None]
  - BACK PAIN [None]
  - COMA [None]
  - DRUG PRESCRIBING ERROR [None]
  - DYSPHONIA [None]
  - FEELING ABNORMAL [None]
  - MALAISE [None]
  - SOPOR [None]
  - SWELLING [None]
